FAERS Safety Report 21728568 (Version 1)
Quarter: 2022Q4

REPORT INFORMATION
  Report Type: Report from Study
  Country: CA (occurrence: CA)
  Receive Date: 20221214
  Receipt Date: 20221214
  Transmission Date: 20230113
  Serious: Yes (Other)
  Sender: FDA-Public Use
  Company Number: CA-002147023-NVSC2020CA360536

PATIENT
  Sex: Female

DRUGS (3)
  1. LUCENTIS [Suspect]
     Active Substance: RANIBIZUMAB
     Indication: Neovascular age-related macular degeneration
     Dosage: UNK (RIGHT EYE)
     Route: 031
     Dates: start: 202007
  2. LUCENTIS [Suspect]
     Active Substance: RANIBIZUMAB
     Dosage: UNK (IN THE LEFT EYE)
     Route: 065
     Dates: start: 202009
  3. BEOVU [Suspect]
     Active Substance: BROLUCIZUMAB-DBLL
     Indication: Product used for unknown indication
     Dosage: UNK
     Route: 065
     Dates: start: 20220801

REACTIONS (3)
  - Neovascular age-related macular degeneration [Unknown]
  - Disease progression [Unknown]
  - General physical health deterioration [Unknown]
